FAERS Safety Report 6028197-0 (Version None)
Quarter: 2009Q1

REPORT INFORMATION
  Report Type: 
  Country: None (occurrence: None)
  Receive Date: 20090106
  Receipt Date: 20090105
  Transmission Date: 20090719
  Serious: Yes (Hospitalization)
  Sender: FDA-Public Use
  Company Number: US-BRISTOL-MYERS SQUIBB COMPANY-14460380

PATIENT
  Sex: Male
  Weight: 67 kg

DRUGS (9)
  1. COUMADIN [Suspect]
     Dosage: 28DEC08-30DEC08: 5MG 01JAN09-04JAN09: 10MG DAILY
     Dates: start: 20081228
  2. MEGACE [Interacting]
     Indication: NEOPLASM MALIGNANT
     Dates: start: 20090102
  3. ALBUTEROL [Concomitant]
  4. AMLODIPINE [Concomitant]
     Dosage: LAST RECEIVED ON 03JAN09
     Dates: end: 20090103
  5. LOVENOX [Concomitant]
     Dates: start: 20081230
  6. HYDROCHLOROTHIAZIDE [Concomitant]
     Dosage: LAST DOSE 01JAN09
     Dates: end: 20090101
  7. MAGNESIUM CITRATE [Concomitant]
     Dosage: 1 DOSAGE FORM = 1 DOSE
     Dates: start: 20090101
  8. MORPHINE [Concomitant]
  9. ACETAMINOPHEN [Concomitant]
     Dosage: Q6H
     Dates: end: 20081230

REACTIONS (2)
  - DRUG INTERACTION [None]
  - INTERNATIONAL NORMALISED RATIO ABNORMAL [None]
